FAERS Safety Report 4448533-6 (Version None)
Quarter: 2004Q3

REPORT INFORMATION
  Report Type: 
  Country: None (occurrence: None)
  Receive Date: 20040914
  Receipt Date: 20040714
  Transmission Date: 20050211
  Serious: Yes (Death, Other)
  Sender: FDA-Public Use
  Company Number: PHHO2004CA10128

PATIENT
  Age: 50 Year
  Sex: Male
  Weight: 85 kg

DRUGS (7)
  1. CLOZARIL [Suspect]
     Indication: SCHIZOPHRENIA
     Dosage: 150 MG / DAY
     Route: 048
     Dates: start: 20040106, end: 20040713
  2. VALPROIC ACID [Concomitant]
  3. RESTORIL [Concomitant]
  4. RIVOTRIL [Concomitant]
  5. COGENTIN [Concomitant]
  6. PRAVACHOL [Concomitant]
  7. DITROPAN [Concomitant]

REACTIONS (4)
  - ASTERIXIS [None]
  - GRANULOCYTOPENIA [None]
  - LUNG NEOPLASM MALIGNANT [None]
  - NEUTROPENIA [None]
